FAERS Safety Report 7417181-8 (Version None)
Quarter: 2011Q2

REPORT INFORMATION
  Report Type: 
  Country: None (occurrence: None)
  Receive Date: 20110415
  Receipt Date: 20110413
  Transmission Date: 20111010
  Serious: Yes (Other)
  Sender: FDA-Public Use
  Company Number: JP-SANOFI-AVENTIS-2011SA022550

PATIENT
  Age: 51 Year
  Sex: Female

DRUGS (7)
  1. VOLTAREN [Concomitant]
     Indication: RHEUMATOID ARTHRITIS
     Route: 048
  2. ARAVA [Suspect]
     Indication: RHEUMATOID ARTHRITIS
     Route: 048
     Dates: start: 20091109, end: 20091213
  3. PREDONINE [Concomitant]
     Indication: RHEUMATOID ARTHRITIS
     Route: 048
  4. SELBEX [Concomitant]
     Route: 048
     Dates: start: 20091214
  5. ARAVA [Suspect]
     Route: 048
     Dates: start: 20091214, end: 20100117
  6. ARAVA [Suspect]
     Route: 048
     Dates: start: 20100222, end: 20100328
  7. SELBEX [Concomitant]
     Indication: DRUG TOXICITY PROPHYLAXIS
     Route: 048
     Dates: start: 20091214

REACTIONS (6)
  - BLOOD LACTATE DEHYDROGENASE INCREASED [None]
  - NAUSEA [None]
  - ASPARTATE AMINOTRANSFERASE INCREASED [None]
  - BLOOD ALKALINE PHOSPHATASE INCREASED [None]
  - ALANINE AMINOTRANSFERASE INCREASED [None]
  - GAMMA-GLUTAMYLTRANSFERASE INCREASED [None]
